FAERS Safety Report 5022076-3 (Version None)
Quarter: 2006Q2

REPORT INFORMATION
  Report Type: 
  Country: None (occurrence: None)
  Receive Date: 20060609
  Receipt Date: 20060601
  Transmission Date: 20061013
  Serious: Yes (Other)
  Sender: FDA-Public Use
  Company Number: 2006UW11450

PATIENT
  Age: 61 Year
  Sex: Female

DRUGS (3)
  1. TOPROL-XL [Suspect]
     Indication: HYPERTENSION
     Route: 048
     Dates: start: 20051201
  2. LEXAPRO [Interacting]
     Indication: TINNITUS
     Route: 048
     Dates: start: 20030101, end: 20060406
  3. LEXAPRO [Interacting]
     Route: 048
     Dates: start: 20060407

REACTIONS (2)
  - DRUG INTERACTION [None]
  - HEART RATE DECREASED [None]
